FAERS Safety Report 19956002 (Version 1)
Quarter: 2021Q4

REPORT INFORMATION
  Report Type: Spontaneous
  Country: GB (occurrence: GB)
  Receive Date: 20211014
  Receipt Date: 20211014
  Transmission Date: 20220303
  Serious: Yes (Hospitalization)
  Sender: FDA-Public Use
  Company Number: None

PATIENT
  Sex: Female

DRUGS (8)
  1. AMLODIPINE [Suspect]
     Active Substance: AMLODIPINE BESYLATE
     Dosage: 5 MILLIGRAM DAILY;
     Dates: start: 20210511, end: 20210524
  2. FELODIPINE [Concomitant]
     Active Substance: FELODIPINE
  3. HYDROXYCHLOROQUINE [Concomitant]
     Active Substance: HYDROXYCHLOROQUINE
     Indication: Sjogren^s syndrome
     Dosage: 200 MILLIGRAM DAILY;
     Dates: start: 20210511
  4. HYPROMELLOSES [Concomitant]
     Active Substance: HYPROMELLOSES
     Indication: Sjogren^s syndrome
     Dosage: 1 DROP PER EYE AS REQUIRED
     Dates: start: 20210212
  5. FLUTICASONE FUROATE [Concomitant]
     Active Substance: FLUTICASONE FUROATE
     Dosage: 27.5UG/DOSE. 2 SPRAYS IN EACH NOSTRIL OD. REDUCE TO ONE SPRAY IN EACH NOSTRIL OD ONCE CONTROL
  6. RINATEC [Concomitant]
     Dosage: 168 MICROGRAM DAILY; TWO SPRAYS IN EACH NOSTRIL.  NOT USING.
  7. SARS-COV-2 [Concomitant]
     Active Substance: SARS-COV-2
     Indication: COVID-19 immunisation
     Dosage: DOSE 2
     Dates: start: 20210423, end: 20210423
  8. ACETAMINOPHEN [Concomitant]
     Active Substance: ACETAMINOPHEN
     Dosage: 2 THREE TIMES DAILY TO FOUR TIMES DAILY AS REQUIRED.

REACTIONS (4)
  - Peripheral swelling [Recovered/Resolved]
  - Headache [Unknown]
  - Nausea [Unknown]
  - Paraesthesia [Unknown]
